FAERS Safety Report 10665972 (Version 1)
Quarter: 2014Q4

REPORT INFORMATION
  Report Type: Spontaneous
  Country: GB (occurrence: GB)
  Receive Date: 20141219
  Receipt Date: 20141219
  Transmission Date: 20150529
  Serious: Yes (Other)
  Sender: FDA-Public Use
  Company Number: ALCN2014GB007023

PATIENT

DRUGS (1)
  1. AZOPT [Suspect]
     Active Substance: BRINZOLAMIDE
     Dosage: UNK
     Route: 047

REACTIONS (20)
  - Gastrointestinal motility disorder [Unknown]
  - Asthenia [Unknown]
  - Feeling abnormal [Unknown]
  - Abdominal discomfort [Unknown]
  - Headache [Unknown]
  - Nausea [Unknown]
  - Vomiting [Unknown]
  - Back pain [Unknown]
  - Dry mouth [Unknown]
  - Oesophagitis [Unknown]
  - Throat irritation [Unknown]
  - Pruritus [Unknown]
  - Malaise [Unknown]
  - Salivary hypersecretion [Unknown]
  - Epistaxis [Unknown]
  - Pain [Unknown]
  - Mouth haemorrhage [Unknown]
  - Hiccups [Unknown]
  - Palpitations [Unknown]
  - Sneezing [Unknown]
